FAERS Safety Report 23438855 (Version 2)
Quarter: 2024Q1

REPORT INFORMATION
  Report Type: Spontaneous
  Country: US (occurrence: US)
  Receive Date: 20240124
  Receipt Date: 20240130
  Transmission Date: 20240409
  Serious: Yes (Death, Other)
  Sender: FDA-Public Use
  Company Number: US-KYOWAKIRIN-2024KK001037

PATIENT

DRUGS (16)
  1. NOURIANZ [Suspect]
     Active Substance: ISTRADEFYLLINE
     Indication: Parkinson^s disease
     Dosage: 40 MG,  QD
     Route: 048
     Dates: start: 20221201
  2. NOURIANZ [Suspect]
     Active Substance: ISTRADEFYLLINE
     Dosage: 40 MG,  QD QHS (DISPENSED IN AMBER VIAL)
     Route: 048
     Dates: start: 20231228
  3. NOURIANZ [Concomitant]
     Active Substance: ISTRADEFYLLINE
     Indication: Product used for unknown indication
     Dosage: 40 MG, QD (1 TABLET BY MOUTH EVERY NIGHT AT BEDTIME)
     Route: 048
  4. ACETAMINOPHEN\CODEINE PHOSPHATE [Concomitant]
     Active Substance: ACETAMINOPHEN\CODEINE PHOSPHATE
     Indication: Pain
     Dosage: 1 DOSAGE FORM, Q6H (TAKE 1 TABLET BY MOUTH EVERY SIX HOURS) 300/30 MG
     Route: 048
  5. AMOXICILLIN\CLAVULANATE POTASSIUM [Concomitant]
     Active Substance: AMOXICILLIN\CLAVULANATE POTASSIUM
     Indication: Product used for unknown indication
     Dosage: 1 DOSAGE FORM, BID (TAKE 1 TABLET MY MOUTH TWICE DAILY) 875/125 MG
     Route: 048
  6. CARBIDOPA\LEVODOPA [Concomitant]
     Active Substance: CARBIDOPA\LEVODOPA
     Indication: Product used for unknown indication
     Dosage: 1 DOSAGE FORM, TID (25/100 MG) (TAKE 1 TABLET BY MOUTH THREE TIMES DAILY)
     Route: 048
  7. CARBIDOPA\LEVODOPA [Concomitant]
     Active Substance: CARBIDOPA\LEVODOPA
     Dosage: 1 DOSAGE FORM, TID (50/200 MG) (TAKE 1 TABLET BY MOUTH THREE TIMES DAILY)
     Route: 048
  8. CEPHALEXIN [Concomitant]
     Active Substance: CEPHALEXIN
     Indication: Product used for unknown indication
     Dosage: 500 MG, TID (TAKE 1 TABLET BY MOUTH THREE TIMES DAILY FOR 5 DAYS)
     Route: 048
  9. ENTACAPONE [Concomitant]
     Active Substance: ENTACAPONE
     Indication: Product used for unknown indication
     Dosage: 200 MG, QID (TAKE 1 TABLET BY MOUTH FOUR TIMES A DAY WITH EACH DOSE OF SINEMET)
     Route: 048
  10. FINASTERIDE [Concomitant]
     Active Substance: FINASTERIDE
     Indication: Product used for unknown indication
     Dosage: 5 MG, QD (TAKE 1 TABLET BY MOUTH DAILY)
     Route: 048
  11. FLUTICASONE [Concomitant]
     Active Substance: FLUTICASONE
     Indication: Product used for unknown indication
     Dosage: 50 MCG, QD (NASAL SP (120) RX SHAKE LIQUID AND USE 1 SPRAY IN EACH NOSTRIL DAILY)
     Route: 045
  12. PRAMIPEXOLE [Concomitant]
     Active Substance: PRAMIPEXOLE\PRAMIPEXOLE DIHYDROCHLORIDE
     Indication: Product used for unknown indication
     Dosage: 0.25 MG, TID (TAKE 1 TABLET BY MOUTH THREE TIMES DAILY)
     Route: 048
  13. ROSUVASTATIN [Concomitant]
     Active Substance: ROSUVASTATIN
     Indication: Product used for unknown indication
     Dosage: 20 MG, QD (TAKE 1 TABLET BY MOUTH DAILY)
     Route: 048
  14. TRAVOPROST [Concomitant]
     Active Substance: TRAVOPROST
     Indication: Product used for unknown indication
     Dosage: UNK, QD 0.004% DROPS 2.5 ML IN STILL 1 DROP BOTH EYES EVERYDAY IN  THE EVENING)
     Route: 065
  15. VALSARTAN [Concomitant]
     Active Substance: VALSARTAN
     Indication: Product used for unknown indication
     Dosage: 160 MG, QD (1 TABLET BY MOUTH EVERYDAY)
     Route: 048
  16. LAGEVRIO [Concomitant]
     Active Substance: MOLNUPIRAVIR
     Indication: Product used for unknown indication
     Dosage: 800 MG, BID (4 CAPSULES BY MOUTH TWICE DAILY)
     Route: 048

REACTIONS (2)
  - Death [Fatal]
  - Product dispensing issue [Unknown]
